FAERS Safety Report 9747364 (Version 1)
Quarter: 2013Q4

REPORT INFORMATION
  Report Type: Spontaneous
  Country: AR (occurrence: AR)
  Receive Date: 20131212
  Receipt Date: 20131212
  Transmission Date: 20140711
  Serious: Yes (Hospitalization)
  Sender: FDA-Public Use
  Company Number: AR-BIOGENIDEC-2013BI118994

PATIENT
  Age: 50 Year
  Sex: Female

DRUGS (1)
  1. AVONEX [Suspect]
     Indication: MULTIPLE SCLEROSIS
     Route: 030
     Dates: start: 201007, end: 201310

REACTIONS (5)
  - Polymyositis [Not Recovered/Not Resolved]
  - Peripheral vascular disorder [Unknown]
  - Thyroid disorder [Unknown]
  - Bipolar disorder [Unknown]
  - Breast neoplasm [Unknown]
